FAERS Safety Report 12266602 (Version 1)
Quarter: 2016Q2

REPORT INFORMATION
  Report Type: Spontaneous
  Country: US (occurrence: None)
  Receive Date: 20160413
  Receipt Date: 20160413
  Transmission Date: 20160815
  Serious: Yes (Other)
  Sender: FDA-Public Use
  Company Number: None

PATIENT
  Age: 34 Year
  Sex: Female
  Weight: 86.86 kg

DRUGS (3)
  1. CIPROFLOXACIN 500MG TAB TEV [Suspect]
     Active Substance: CIPROFLOXACIN
     Indication: URINARY TRACT INFECTION
     Route: 048
     Dates: start: 20160325, end: 20160328
  2. HYDROCOD / ACETAM [Concomitant]
  3. ORPHENADRINE ER [Concomitant]

REACTIONS (6)
  - Blindness [None]
  - Vision blurred [None]
  - Intentional self-injury [None]
  - Fall [None]
  - Feeling abnormal [None]
  - Hypoaesthesia [None]

NARRATIVE: CASE EVENT DATE: 20160325
